FAERS Safety Report 9747909 (Version 2)
Quarter: 2014Q1

REPORT INFORMATION
  Report Type: Spontaneous
  Country: GB (occurrence: None)
  Receive Date: 20131206
  Receipt Date: 20140325
  Transmission Date: 20141002
  Serious: Yes (Hospitalization)
  Sender: FDA-Public Use
  Company Number: FK201305201

PATIENT
  Age: 65 Year
  Sex: Female
  Weight: 66.7 kg

DRUGS (4)
  1. IRINOTECAN [Suspect]
     Indication: CHEMOTHERAPY
     Dates: start: 20131107
  2. OXALIPLATIN (OXALIPLATIN) [Concomitant]
  3. FLUOROURACIL (FLUOROURACIL) [Concomitant]
  4. FLOINIC ACID (FLOINIC ACID) [Concomitant]

REACTIONS (3)
  - Paraesthesia [None]
  - Hypoaesthesia oral [None]
  - Dizziness [None]
